FAERS Safety Report 24022434 (Version 1)
Quarter: 2024Q2

REPORT INFORMATION
  Report Type: Spontaneous
  Country: NL (occurrence: NL)
  Receive Date: 20240627
  Receipt Date: 20240627
  Transmission Date: 20240716
  Serious: No
  Sender: FDA-Public Use
  Company Number: NL-ROCHE-3172273

PATIENT
  Age: 11 Year
  Sex: Female

DRUGS (2)
  1. ENTRECTINIB [Suspect]
     Active Substance: ENTRECTINIB
     Indication: T-cell type acute leukaemia
     Route: 065
     Dates: start: 20220829, end: 202209
  2. NELARABINE [Concomitant]
     Active Substance: NELARABINE

REACTIONS (2)
  - Off label use [Unknown]
  - No adverse event [Unknown]
